FAERS Safety Report 8504450-3 (Version None)
Quarter: 2012Q3

REPORT INFORMATION
  Report Type: 
  Country: None (occurrence: None)
  Receive Date: 20120711
  Receipt Date: 20120629
  Transmission Date: 20120928
  Serious: Yes (Hospitalization, Other)
  Sender: FDA-Public Use
  Company Number: JP-009507513-1207USA00142

PATIENT

DRUGS (8)
  1. PL-GRANULES [Suspect]
     Route: 048
     Dates: start: 20120530
  2. CHLOPHEDIANOL HYDROCHLORIDE [Suspect]
     Route: 048
     Dates: start: 20120523
  3. GASMOTIN [Concomitant]
     Route: 048
     Dates: start: 20120530
  4. AMITRIPTYLINE HCL [Suspect]
     Indication: ENURESIS
     Dosage: 10 MG, QD
     Route: 048
     Dates: start: 20120523, end: 20120604
  5. URITOS [Concomitant]
     Route: 048
     Dates: start: 20120523
  6. FAMOTIDINE [Suspect]
     Route: 048
     Dates: start: 20120530
  7. AMITRIPTYLINE HCL [Suspect]
  8. REBAMIPIDE [Concomitant]
     Dates: start: 20120530

REACTIONS (1)
  - STEVENS-JOHNSON SYNDROME [None]
